FAERS Safety Report 19956255 (Version 1)
Quarter: 2021Q4

REPORT INFORMATION
  Report Type: Spontaneous
  Country: AU (occurrence: AU)
  Receive Date: 20211014
  Receipt Date: 20211014
  Transmission Date: 20220303
  Serious: Yes (Life-Threatening)
  Sender: FDA-Public Use
  Company Number: AU-BOEHRINGERINGELHEIM-2021-BI-131743

PATIENT
  Age: 71 Year
  Sex: Male

DRUGS (6)
  1. ATROVENT [Suspect]
     Active Substance: IPRATROPIUM BROMIDE
     Indication: Product used for unknown indication
     Dosage: 2 PUFFS, 2 PUFF(S) TWICE DAILY (4 PUFF(S) DAILY)
     Dates: start: 2020
  2. FLUTICASONE PROPIONATE\SALMETEROL XINAFOATE [Suspect]
     Active Substance: FLUTICASONE PROPIONATE\SALMETEROL XINAFOATE
     Indication: Asthma
     Dosage: 2 PUFFS VIA A SPACER. STRENGTH REPORTED AS ^250^,?2 PUFF(S) TWICE DAILY (4 PUFF(S) DAILY), ?HFA METE
     Dates: start: 2020
  3. SERETIDE [Suspect]
     Active Substance: FLUTICASONE PROPIONATE\SALMETEROL XINAFOATE
     Indication: Asthma
     Dates: start: 2020
  4. SPIRIVA [Suspect]
     Active Substance: TIOTROPIUM BROMIDE MONOHYDRATE
     Indication: Product used for unknown indication
     Dosage: 2 PUFF(S) ONCE DAILY ??DOSE: 2 DOSE UNSPECIFIED , INTERVAL: 1 DAY
     Dates: start: 2020
  5. VENTOLIN [Suspect]
     Active Substance: ALBUTEROL SULFATE
     Indication: Asthma
     Dosage: HFA METERED DOSE INHALER DEVICE INHALER
     Dates: start: 2020
  6. VENTOLIN [Suspect]
     Active Substance: ALBUTEROL SULFATE
     Dosage: HFA METERED DOSE INHALER DEVICE INHALER
     Dates: start: 2020

REACTIONS (6)
  - Dyspnoea [Not Recovered/Not Resolved]
  - Gait inability [Unknown]
  - Cough [Unknown]
  - Drug ineffective [Unknown]
  - Overdose [Unknown]
  - Product complaint [Unknown]

NARRATIVE: CASE EVENT DATE: 20200101
